FAERS Safety Report 9179001 (Version 1)
Quarter: 2013Q1

REPORT INFORMATION
  Report Type: Spontaneous
  Country: US (occurrence: US)
  Receive Date: 20130321
  Receipt Date: 20130321
  Transmission Date: 20140127
  Serious: Yes (Other)
  Sender: FDA-Public Use
  Company Number: US-PFIZER INC-2013092075

PATIENT
  Age: 41 Year
  Sex: Male
  Weight: 167.8 kg

DRUGS (2)
  1. GEODON [Suspect]
     Indication: BORDERLINE PERSONALITY DISORDER
     Dosage: 80 MG, 1X/DAY
     Route: 048
     Dates: end: 201301
  2. PAXIL [Concomitant]
     Dosage: 40 MG, UNK

REACTIONS (3)
  - Off label use [Unknown]
  - Suicidal ideation [Recovering/Resolving]
  - Depression [Recovering/Resolving]
